FAERS Safety Report 8013040-0 (Version None)
Quarter: 2011Q4

REPORT INFORMATION
  Report Type: 
  Country: None (occurrence: None)
  Receive Date: 20111229
  Receipt Date: 20111227
  Transmission Date: 20120403
  Serious: Yes (Life-Threatening)
  Sender: FDA-Public Use
  Company Number: JP-PFIZER INC-2011314393

PATIENT
  Age: 75 Year
  Sex: Male

DRUGS (1)
  1. SUTENT [Suspect]
     Indication: RENAL CELL CARCINOMA
     Dosage: 75 MG/DAY
     Route: 048
     Dates: start: 20111207

REACTIONS (3)
  - PLATELET COUNT DECREASED [None]
  - RENAL FAILURE ACUTE [None]
  - PULMONARY OEDEMA [None]
